FAERS Safety Report 4462587-2 (Version None)
Quarter: 2004Q3

REPORT INFORMATION
  Report Type: 
  Country: None (occurrence: None)
  Receive Date: 20040928
  Receipt Date: 20030318
  Transmission Date: 20050211
  Serious: Yes (Death)
  Sender: FDA-Public Use
  Company Number: 2004234032CA

PATIENT
  Age: 45 Year
  Sex: Female

DRUGS (11)
  1. ZYVOX [Suspect]
     Indication: STAPHYLOCOCCAL INFECTION
     Dosage: 600 MG, DAILY, ORAL
     Route: 048
     Dates: start: 20030205, end: 20030219
  2. ZYVOX [Suspect]
     Indication: STAPHYLOCOCCAL INFECTION
     Dosage: 600 MG, DAILY, IV
     Route: 042
     Dates: start: 20030219, end: 20030221
  3. VANCOMYCIN [Suspect]
     Indication: STAPHYLOCOCCAL INFECTION
     Dosage: SEE IMAGE
     Route: 042
     Dates: start: 20021224, end: 20021224
  4. VANCOMYCIN [Suspect]
     Indication: STAPHYLOCOCCAL INFECTION
     Dosage: SEE IMAGE
     Route: 042
     Dates: start: 20021227, end: 20021231
  5. VANCOMYCIN [Suspect]
     Indication: STAPHYLOCOCCAL INFECTION
     Dosage: SEE IMAGE
     Route: 042
     Dates: start: 20021231, end: 20030120
  6. VANCOMYCIN [Suspect]
     Indication: STAPHYLOCOCCAL INFECTION
     Dosage: SEE IMAGE
     Route: 042
     Dates: start: 20030120, end: 20030205
  7. GATIFLOXACIN [Suspect]
     Indication: STAPHYLOCOCCAL INFECTION
     Dosage: 400 MG, DAILY, ORAL  : 400 MG, EVERY 48 HOURS
     Route: 048
     Dates: start: 20030204, end: 20030205
  8. GATIFLOXACIN [Suspect]
     Indication: STAPHYLOCOCCAL INFECTION
     Dosage: 400 MG, DAILY, ORAL  : 400 MG, EVERY 48 HOURS
     Route: 048
     Dates: start: 20030207, end: 20030212
  9. RIFAMPICIN [Suspect]
     Indication: STAPHYLOCOCCAL INFECTION
     Dosage: 300 MG , DAILY ,ORAL  : 300 MG EVERY 48 HOURS, ORAL
     Route: 048
     Dates: start: 20030205, end: 20030212
  10. RIFAMPICIN [Suspect]
     Indication: STAPHYLOCOCCAL INFECTION
     Dosage: 300 MG , DAILY ,ORAL  : 300 MG EVERY 48 HOURS, ORAL
     Route: 048
     Dates: start: 20030212, end: 20030218
  11. MEROPENEM(MEROPENEM) [Suspect]
     Indication: STAPHYLOCOCCAL INFECTION
     Dosage: 500 MG EVERY 24 HOURS, IV
     Route: 042
     Dates: start: 20030218, end: 20030221

REACTIONS (4)
  - CONDITION AGGRAVATED [None]
  - DRUG INEFFECTIVE [None]
  - SEPSIS [None]
  - THROMBOCYTOPENIA [None]
